FAERS Safety Report 6195459-6 (Version None)
Quarter: 2009Q2

REPORT INFORMATION
  Report Type: 
  Country: None (occurrence: None)
  Receive Date: 20090519
  Receipt Date: 20090507
  Transmission Date: 20091009
  Serious: Yes (Other)
  Sender: FDA-Public Use
  Company Number: MX-PFIZER INC-2009210886

PATIENT
  Age: 32 Year

DRUGS (1)
  1. PHENYTOIN AND PHENYTOIN SODIUM [Suspect]
     Dosage: UNIT DOSE: UNK; FREQUENCY: UNK, UNK;

REACTIONS (3)
  - CONVULSION [None]
  - SKIN DISCOLOURATION [None]
  - SKIN EXFOLIATION [None]
